FAERS Safety Report 5575925-4 (Version None)
Quarter: 2007Q4

REPORT INFORMATION
  Report Type: 
  Country: None (occurrence: None)
  Receive Date: 20071226
  Receipt Date: 20071213
  Transmission Date: 20080405
  Serious: Yes (Other)
  Sender: FDA-Public Use
  Company Number: 100#03#2007-05275

PATIENT
  Age: 55 Year
  Sex: Male

DRUGS (5)
  1. PRAVASTATIN [Suspect]
     Indication: BLOOD CHOLESTEROL INCREASED
     Dosage: 20 MG; 40 MG
     Route: 048
     Dates: start: 20071001, end: 20071109
  2. PRAVASTATIN [Suspect]
     Indication: BLOOD CHOLESTEROL INCREASED
     Dosage: 20 MG; 40 MG
     Route: 048
     Dates: start: 20071109, end: 20071207
  3. SIMVASTATIN [Suspect]
     Indication: DRUG USE FOR UNKNOWN INDICATION
  4. ATENOLOL [Concomitant]
  5. CLIOQUINOL/FLUMETASONE (CLIOQUINOL, FLUMETASONE) [Concomitant]

REACTIONS (9)
  - AMNESIA [None]
  - CONFUSIONAL STATE [None]
  - LIBIDO DECREASED [None]
  - MUSCLE ATROPHY [None]
  - MUSCULAR WEAKNESS [None]
  - MYALGIA [None]
  - NOCTURIA [None]
  - SLEEP DISORDER [None]
  - SWOLLEN TONGUE [None]
